FAERS Safety Report 22290907 (Version 9)
Quarter: 2024Q1

REPORT INFORMATION
  Report Type: Report from Study
  Country: US (occurrence: US)
  Receive Date: 20230506
  Receipt Date: 20240110
  Transmission Date: 20240410
  Serious: No
  Sender: FDA-Public Use
  Company Number: US-002147023-NVSC2023US099447

PATIENT
  Age: 61 Year
  Sex: Female

DRUGS (2)
  1. KESIMPTA [Suspect]
     Active Substance: OFATUMUMAB
     Indication: Relapsing multiple sclerosis
     Dosage: UNK, QW
     Route: 065
  2. KESIMPTA [Suspect]
     Active Substance: OFATUMUMAB
     Indication: Multiple sclerosis
     Dosage: 20 MG, QMO
     Route: 058
     Dates: start: 20230627

REACTIONS (10)
  - Influenza like illness [Unknown]
  - Headache [Recovering/Resolving]
  - Nausea [Recovering/Resolving]
  - Hypoaesthesia [Recovering/Resolving]
  - Pyrexia [Recovered/Resolved]
  - Gait disturbance [Not Recovered/Not Resolved]
  - Respiratory disorder [Unknown]
  - Cough [Unknown]
  - Nasopharyngitis [Not Recovered/Not Resolved]
  - Inappropriate schedule of product administration [Unknown]

NARRATIVE: CASE EVENT DATE: 20230624
